FAERS Safety Report 4647875-9 (Version None)
Quarter: 2005Q2

REPORT INFORMATION
  Report Type: 
  Country: None (occurrence: None)
  Receive Date: 20050426
  Receipt Date: 20050411
  Transmission Date: 20051028
  Serious: Yes (Hospitalization, Disabling)
  Sender: FDA-Public Use
  Company Number: 2005-0008068

PATIENT
  Age: 37 Year
  Sex: Female
  Weight: 153 kg

DRUGS (7)
  1. TRUVADA [Suspect]
     Indication: HIV INFECTION
     Dosage: 1 DOSAGE FORMS, 1 IN 1 D, ORAL
     Route: 048
     Dates: start: 20041014, end: 20041220
  2. KALETRA [Concomitant]
  3. BACTRIM DS [Concomitant]
  4. ZITHROMAX [Concomitant]
  5. ISONIAZID [Concomitant]
  6. PRENATAL VITAMIN (PRENATAL VITAMNS) [Concomitant]
  7. IRON (IRON) [Concomitant]

REACTIONS (6)
  - ACUTE PSYCHOSIS [None]
  - ENCEPHALOPATHY [None]
  - HALLUCINATIONS, MIXED [None]
  - INSOMNIA [None]
  - PARANOIA [None]
  - SINUSITIS [None]
